FAERS Safety Report 6159688-X (Version None)
Quarter: 2009Q2

REPORT INFORMATION
  Report Type: 
  Country: None (occurrence: None)
  Receive Date: 20090415
  Receipt Date: 20090402
  Transmission Date: 20091009
  Serious: Yes (Other)
  Sender: FDA-Public Use
  Company Number: ACO_00533_2009

PATIENT
  Sex: Female
  Weight: 7 kg

DRUGS (7)
  1. TIZANIDINE HCL [Suspect]
     Indication: MUSCLE TIGHTNESS
     Dosage: 1 MG 6X/DAY, RECTAL
     Route: 054
     Dates: start: 20071201
  2. TIZANIDINE HCL [Suspect]
     Indication: MUSCLE TIGHTNESS
     Dosage: 1.5 ML PER HOUR FOR UNKNOWN RECTAL)
     Route: 054
     Dates: start: 20081101
  3. ENSURE [Concomitant]
  4. TOPIRAMATE [Concomitant]
  5. GABAPENTIN [Concomitant]
  6. ONON [Concomitant]
  7. GASTER [Concomitant]

REACTIONS (12)
  - ALANINE AMINOTRANSFERASE INCREASED [None]
  - ASPARTATE AMINOTRANSFERASE INCREASED [None]
  - BLOOD ALKALINE PHOSPHATASE INCREASED [None]
  - BLOOD LACTATE DEHYDROGENASE INCREASED [None]
  - BRADYCARDIA [None]
  - DEHYDRATION [None]
  - DIARRHOEA [None]
  - DRUG EFFECT DECREASED [None]
  - EPILEPSY [None]
  - GENERAL PHYSICAL HEALTH DETERIORATION [None]
  - HAEMOGLOBIN DECREASED [None]
  - LARYNGOTRACHEAL OPERATION [None]
